FAERS Safety Report 13066051 (Version 1)
Quarter: 2016Q4

REPORT INFORMATION
  Report Type: Spontaneous
  Country: IT (occurrence: IT)
  Receive Date: 20161227
  Receipt Date: 20161227
  Transmission Date: 20170207
  Serious: Yes (Hospitalization)
  Sender: FDA-Public Use
  Company Number: IT-SA-2016SA229731

PATIENT
  Age: 32 Year
  Sex: Female
  Weight: 79 kg

DRUGS (6)
  1. RIFADIN [Suspect]
     Active Substance: RIFAMPIN
     Indication: LYMPH NODE TUBERCULOSIS
     Route: 048
     Dates: start: 20081205, end: 20081215
  2. DELTACORTENE [Concomitant]
     Active Substance: PREDNISONE
  3. PIRALDINA [Suspect]
     Active Substance: PYRAZINAMIDE
     Indication: LYMPH NODE TUBERCULOSIS
     Route: 048
     Dates: start: 20081205, end: 20081215
  4. NICOZID [Suspect]
     Active Substance: ISONIAZID
     Indication: LYMPH NODE TUBERCULOSIS
     Route: 048
     Dates: start: 20081205, end: 20081215
  5. ETAPIAM [Concomitant]
     Active Substance: ETHAMBUTOL HYDROCHLORIDE
     Indication: LYMPH NODE TUBERCULOSIS
     Dosage: 400 MG VARNISHED TABLETS
     Route: 048
     Dates: start: 20081205, end: 20081215
  6. PLAQUENIL [Concomitant]
     Active Substance: HYDROXYCHLOROQUINE SULFATE
     Indication: SYSTEMIC LUPUS ERYTHEMATOSUS
     Route: 048

REACTIONS (2)
  - Hepatitis acute [Recovered/Resolved]
  - Pancreatitis acute [Recovered/Resolved]

NARRATIVE: CASE EVENT DATE: 20081215
